FAERS Safety Report 7423763-X (Version None)
Quarter: 2011Q2

REPORT INFORMATION
  Report Type: 
  Country: None (occurrence: None)
  Receive Date: 20110407
  Receipt Date: 20110328
  Transmission Date: 20111010
  Serious: Yes (Other)
  Sender: FDA-Public Use
  Company Number: TRP_07617_2011

PATIENT
  Age: 54 Year
  Sex: Male

DRUGS (3)
  1. PAROXETINE [Concomitant]
  2. RIBAVIRIN [Suspect]
     Indication: HEPATITIS C
     Dosage: 800 MG, DAILY
  3. PEGINTERFERON ALFA-2B [Suspect]
     Indication: HEPATITIS C
     Dosage: 150 ?G 1X/WEEK

REACTIONS (2)
  - SYNCOPE [None]
  - CONVULSION [None]
